FAERS Safety Report 17589545 (Version 1)
Quarter: 2020Q1

REPORT INFORMATION
  Report Type: Spontaneous
  Country: US (occurrence: US)
  Receive Date: 20200327
  Receipt Date: 20200327
  Transmission Date: 20200409
  Serious: No
  Sender: FDA-Public Use
  Company Number: US-ALLERGAN-1923473US

PATIENT
  Age: 38 Year
  Sex: Female

DRUGS (2)
  1. BIMATOPROST UNK [Suspect]
     Active Substance: BIMATOPROST
     Indication: GLAUCOMA
  2. BIMATOPROST UNK [Suspect]
     Active Substance: BIMATOPROST
     Indication: OCULAR HYPERTENSION
     Dosage: UNK
     Route: 047
     Dates: start: 20160222, end: 20160222

REACTIONS (1)
  - Iridocyclitis [Not Recovered/Not Resolved]

NARRATIVE: CASE EVENT DATE: 20190124
